FAERS Safety Report 23964107 (Version 1)
Quarter: 2024Q2

REPORT INFORMATION
  Report Type: Spontaneous
  Country: US (occurrence: None)
  Receive Date: 20240611
  Receipt Date: 20240611
  Transmission Date: 20240715
  Serious: Yes (Other)
  Sender: FDA-Public Use
  Company Number: None

PATIENT
  Age: 76 Year
  Sex: Female
  Weight: 109.35 kg

DRUGS (1)
  1. LUMASON [Suspect]
     Active Substance: SULFUR HEXAFLUORIDE
     Dosage: 4 ML AS NEEDED INTRAVENOUS BOLUS
     Route: 040

REACTIONS (5)
  - Headache [None]
  - Chest pain [None]
  - Anxiety [None]
  - Drug hypersensitivity [None]
  - Contrast media reaction [None]

NARRATIVE: CASE EVENT DATE: 20240610
